FAERS Safety Report 16465039 (Version 1)
Quarter: 2019Q2

REPORT INFORMATION
  Report Type: Spontaneous
  Country: US (occurrence: US)
  Receive Date: 20190621
  Receipt Date: 20190621
  Transmission Date: 20190711
  Serious: No
  Sender: FDA-Public Use
  Company Number: US-VIFOR (INTERNATIONAL) INC.-VIT-2019-05491

PATIENT
  Age: 82 Year
  Sex: Male
  Weight: 93 kg

DRUGS (22)
  1. WARFARIN [Concomitant]
     Active Substance: WARFARIN
     Route: 048
     Dates: start: 20170717
  2. LEVOTHYROXINE. [Concomitant]
     Active Substance: LEVOTHYROXINE
     Route: 048
     Dates: start: 20160722
  3. IMODIUM [Concomitant]
     Active Substance: LOPERAMIDE HYDROCHLORIDE
     Route: 048
     Dates: start: 20190205
  4. BREO ELLIPTA [Concomitant]
     Active Substance: FLUTICASONE FUROATE\VILANTEROL TRIFENATATE
     Dosage: 100 MCG-25 MCG
     Dates: start: 20181215
  5. RENA-VITE [Concomitant]
     Active Substance: ASCORBIC ACID\BIOTIN\CALCIUM PANTOTHENATE\CYANOCOBALAMIN\FOLIC ACID\NIACINAMIDE\PYRIDOXINE HYDROCHLORIDE\RIBOFLAVIN\THIAMINE MONONITRATE
     Route: 048
     Dates: start: 20170106
  6. LANTUS [Concomitant]
     Active Substance: INSULIN GLARGINE
     Dosage: 100U/ML
     Route: 058
     Dates: start: 20160722
  7. MIRCERA [Suspect]
     Active Substance: METHOXY POLYETHYLENE GLYCOL-EPOETIN BETA
     Indication: ERYTHROPOIESIS ABNORMAL
     Route: 040
     Dates: start: 20190524
  8. ZEMPLAR [Concomitant]
     Active Substance: PARICALCITOL
     Dosage: EVERY SCHEDULED DIALYSIS TREATMENT
     Route: 042
     Dates: start: 20190227
  9. FINASTERIDE. [Concomitant]
     Active Substance: FINASTERIDE
     Route: 048
     Dates: start: 20181011
  10. TAMSULOSIN [Concomitant]
     Active Substance: TAMSULOSIN
     Route: 048
     Dates: start: 20181011
  11. ASPIRIN. [Concomitant]
     Active Substance: ASPIRIN
     Route: 048
     Dates: start: 20160722
  12. SULFAMETHOXAZOLE- TRIMETHOPRIM [Concomitant]
     Dosage: 800/160
     Route: 048
     Dates: start: 20171229
  13. PHOSLO [Concomitant]
     Active Substance: CALCIUM ACETATE
     Dosage: WITH MEALS AND SNACKS
     Route: 048
     Dates: start: 20160923
  14. MIRCERA [Suspect]
     Active Substance: METHOXY POLYETHYLENE GLYCOL-EPOETIN BETA
     Route: 040
     Dates: start: 20190528
  15. ACETAMINOPHEN. [Concomitant]
     Active Substance: ACETAMINOPHEN
     Dosage: 325 MG X 2
     Route: 048
     Dates: start: 20181011
  16. VICTOZA [Concomitant]
     Active Substance: LIRAGLUTIDE
     Dosage: AT BEDTIME
     Route: 058
     Dates: start: 20180609
  17. CRESTOR [Concomitant]
     Active Substance: ROSUVASTATIN CALCIUM
     Dosage: AT BEDTIME
     Route: 048
     Dates: start: 20160902
  18. LIQUACEL [Concomitant]
     Route: 048
     Dates: start: 20160812
  19. VICTOZA [Concomitant]
     Active Substance: LIRAGLUTIDE
     Route: 058
     Dates: start: 20181011
  20. LUTEIN ZEAXANTHIN [Concomitant]
     Route: 048
     Dates: start: 20161123
  21. OXYGEN. [Concomitant]
     Active Substance: OXYGEN
     Dosage: 2 LITRE/MINUTE
     Route: 061
     Dates: start: 20170926
  22. INSULIN-HUMALOG [Concomitant]
     Dosage: 6-16 UNITS AS DIRECTED
     Route: 058
     Dates: start: 20161123

REACTIONS (2)
  - Haemodialysis [Unknown]
  - Inappropriate schedule of product administration [Recovered/Resolved]

NARRATIVE: CASE EVENT DATE: 20190525
